FAERS Safety Report 5760171-1 (Version None)
Quarter: 2008Q2

REPORT INFORMATION
  Report Type: 
  Country: None (occurrence: None)
  Receive Date: 20080605
  Receipt Date: 20080310
  Transmission Date: 20081010
  Serious: Yes (Hospitalization)
  Sender: FDA-Public Use
  Company Number: US-BOEHRINGER INGELHEIM GMBH, GERMANY-2007-BP-16375BP

PATIENT
  Sex: Male
  Weight: 102 kg

DRUGS (70)
  1. MIRAPEX [Suspect]
     Indication: RESTLESS LEGS SYNDROME
     Dates: start: 19990212, end: 19991122
  2. MIRAPEX [Suspect]
     Dates: start: 19991122, end: 20010323
  3. MIRAPEX [Suspect]
     Dates: start: 20010323, end: 20030505
  4. MIRAPEX [Suspect]
     Dates: start: 20030205, end: 20030905
  5. MIRAPEX [Suspect]
     Dates: start: 20030905, end: 20060601
  6. REQUIP [Concomitant]
     Indication: RESTLESS LEGS SYNDROME
  7. LIPITOR [Concomitant]
     Indication: BLOOD CHOLESTEROL INCREASED
  8. PROZAC [Concomitant]
  9. CELEXA [Concomitant]
  10. EFFEXOR [Concomitant]
  11. SINEMET [Concomitant]
  12. TRILEPTAL [Concomitant]
  13. TEGRETOL [Concomitant]
  14. TRANSDERM [Concomitant]
  15. SCOPOLAMINE [Concomitant]
  16. AMBIEN [Concomitant]
  17. PREVIDENT [Concomitant]
  18. TRIAMCINOLONE/VANI [Concomitant]
  19. DIFLUCAN [Concomitant]
  20. LEVAQUIN [Concomitant]
  21. CEPHALEXIN [Concomitant]
  22. ZITHROMAX [Concomitant]
  23. VICODIN [Concomitant]
  24. FLUOXETINE HCL [Concomitant]
  25. CARBAMAZEPINE [Concomitant]
  26. ZOVIRAX [Concomitant]
  27. AMITRIPTYLINE HCL [Concomitant]
  28. ARTHROTEC [Concomitant]
  29. TRIAMCINOLONE [Concomitant]
  30. ZETIA [Concomitant]
  31. HYOSCYAMINE [Concomitant]
  32. PREVACID [Concomitant]
  33. DARVOCET N [Concomitant]
  34. AMOXICILLIN [Concomitant]
  35. NYSTATIN [Concomitant]
  36. CHLORHEXIDINE GLUCONATE [Concomitant]
  37. ZOLOFT [Concomitant]
  38. CLONAZEPAM [Concomitant]
  39. TUSSIONEX [Concomitant]
  40. APHTHASOL [Concomitant]
  41. TRAMADOL HCL [Concomitant]
  42. ACETAMINOPHEN AND CODEINE PHOSPHATE #3 [Concomitant]
  43. HYDROXYZINE [Concomitant]
  44. NISPAN [Concomitant]
  45. LUNESTA [Concomitant]
  46. METRONIDAZOLE HCL [Concomitant]
  47. GABAPENTIN [Concomitant]
  48. SUCRALFATE [Concomitant]
  49. SULFAMETHOXAZOLE AND TRIMETHOPRIM DOUBLE STRENGTH [Concomitant]
  50. COLESTID [Concomitant]
  51. ROZEREM [Concomitant]
  52. MIRALAX [Concomitant]
  53. CIPRO [Concomitant]
  54. LEVSIN [Concomitant]
  55. ZOCOR [Concomitant]
  56. ALEVE [Concomitant]
  57. FLOXIN [Concomitant]
  58. SEPTRA [Concomitant]
  59. VIOXX [Concomitant]
  60. FLEXERIL [Concomitant]
  61. RELAFEN [Concomitant]
  62. CELEBREX [Concomitant]
  63. VANCENASE AQ [Concomitant]
  64. XANAX [Concomitant]
  65. ELAVIL [Concomitant]
  66. ZOMAX [Concomitant]
  67. BEXTRA [Concomitant]
  68. KLONOPIN [Concomitant]
  69. TYLENOL [Concomitant]
  70. TORADOL [Concomitant]

REACTIONS (8)
  - DEPRESSION [None]
  - EMOTIONAL DISTRESS [None]
  - HYPERPHAGIA [None]
  - INJURY [None]
  - OBSESSIVE-COMPULSIVE DISORDER [None]
  - PATHOLOGICAL GAMBLING [None]
  - SUICIDE ATTEMPT [None]
  - WEIGHT INCREASED [None]
